FAERS Safety Report 13691628 (Version 2)
Quarter: 2017Q4

REPORT INFORMATION
  Report Type: Report from Study
  Country: GR (occurrence: GR)
  Receive Date: 20170626
  Receipt Date: 20171101
  Transmission Date: 20180320
  Serious: Yes (Life-Threatening, Hospitalization)
  Sender: FDA-Public Use
  Company Number: GR-TAKEDA-2017MPI004715

PATIENT
  Age: 77 Year
  Sex: Male
  Weight: 111 kg

DRUGS (9)
  1. VELCADE [Suspect]
     Active Substance: BORTEZOMIB
     Indication: PLASMA CELL MYELOMA
     Dosage: 2.6 MG, UNK
     Route: 058
     Dates: start: 20160727, end: 20161202
  2. REVLIMID [Suspect]
     Active Substance: LENALIDOMIDE
     Indication: PLASMA CELL MYELOMA
     Dosage: 15 MG, UNK
     Route: 048
     Dates: start: 20161228, end: 20170423
  3. ALKERAN [Concomitant]
     Active Substance: MELPHALAN
     Indication: PLASMA CELL MYELOMA
     Dosage: 18 MG, UNK
     Route: 042
     Dates: start: 20160727, end: 20161202
  4. DECADRON [Concomitant]
     Active Substance: DEXAMETHASONE
     Dosage: 24 MG, UNK
     Route: 048
     Dates: start: 20161228
  5. ZOLEDRONIC ACID [Concomitant]
     Active Substance: ZOLEDRONIC ACID
     Route: 065
  6. DECADRON [Concomitant]
     Active Substance: DEXAMETHASONE
     Indication: PLASMA CELL MYELOMA
     Dosage: 64 MG, UNK
     Route: 048
     Dates: start: 20160727, end: 20161202
  7. EPOETIN [Concomitant]
     Active Substance: ERYTHROPOIETIN
     Route: 065
  8. ASPIRIN                            /00002701/ [Concomitant]
     Active Substance: ASPIRIN
     Indication: THROMBOSIS PROPHYLAXIS
     Route: 065
  9. DARBEPOETIN [Concomitant]
     Active Substance: DARBEPOETIN ALFA
     Route: 065

REACTIONS (2)
  - Respiratory tract infection [Recovered/Resolved]
  - Respiratory tract infection [Recovered/Resolved]

NARRATIVE: CASE EVENT DATE: 20161221
